FAERS Safety Report 8094489-7 (Version None)
Quarter: 2012Q1

REPORT INFORMATION
  Report Type: 
  Country: None (occurrence: None)
  Receive Date: 20120126
  Receipt Date: 20110121
  Transmission Date: 20120608
  Serious: Yes (Life-Threatening)
  Sender: FDA-Public Use
  Company Number: 008918

PATIENT
  Age: 70 Year
  Sex: Male
  Weight: 87 kg

DRUGS (5)
  1. BUSULFAN [Suspect]
     Dosage: 0.8 MG/KG, QID, INTRAVENOUS
     Route: 042
     Dates: start: 20100131, end: 20100201
  2. CYCLOSPORINE [Concomitant]
  3. METHOTREXATE SODIUM [Concomitant]
  4. ATG (ANTILYMPHOCYTE IMMUNOGLOBULIN (HORSE)) [Concomitant]
  5. FLUDARABINE PHOSPHATE [Concomitant]

REACTIONS (5)
  - LIVER DISORDER [None]
  - RENAL FAILURE [None]
  - PYREXIA [None]
  - LIVER INJURY [None]
  - HYPERBILIRUBINAEMIA [None]
